FAERS Safety Report 20598044 (Version 2)
Quarter: 2022Q2

REPORT INFORMATION
  Report Type: Spontaneous
  Country: RU (occurrence: RU)
  Receive Date: 20220315
  Receipt Date: 20220526
  Transmission Date: 20220721
  Serious: Yes (Other)
  Sender: FDA-Public Use
  Company Number: RU-MLMSERVICE-20220307-3419122-1

PATIENT
  Age: 72 Year
  Sex: Female

DRUGS (2)
  1. DEXAMETHASONE [Suspect]
     Active Substance: DEXAMETHASONE
     Indication: Cardiac amyloidosis
     Dosage: DEXAMETHASONE 40 MG PO ON DAYS 1-4 EVERY 4 WEEKS
     Route: 048
     Dates: start: 2018
  2. MELPHALAN [Suspect]
     Active Substance: MELPHALAN
     Indication: Cardiac amyloidosis
     Dosage: CYCLICAL
     Route: 065

REACTIONS (1)
  - Thrombocytopenia [Unknown]
